FAERS Safety Report 9224327 (Version 20)
Quarter: 2018Q3

REPORT INFORMATION
  Report Type: Report from Study
  Country: CO (occurrence: CO)
  Receive Date: 20130411
  Receipt Date: 20180808
  Transmission Date: 20181010
  Serious: Yes (Other)
  Sender: FDA-Public Use
  Company Number: PHHY2013CO033603

PATIENT
  Age: 46 Year
  Sex: Female
  Weight: 69 kg

DRUGS (9)
  1. GLIVEC [Suspect]
     Active Substance: IMATINIB MESYLATE
     Indication: CHRONIC MYELOID LEUKAEMIA
     Dosage: 400 MG, QD
     Route: 048
     Dates: start: 20030101
  2. GLIVEC [Suspect]
     Active Substance: IMATINIB MESYLATE
     Dosage: 400 MG, QD
     Route: 048
  3. IMATINIB [Suspect]
     Active Substance: IMATINIB
     Indication: CHRONIC MYELOID LEUKAEMIA
     Dosage: UNK
     Route: 065
     Dates: start: 200906
  4. GLIVEC [Suspect]
     Active Substance: IMATINIB MESYLATE
     Dosage: 400 MG, QD
     Route: 048
     Dates: start: 20120907, end: 20130404
  5. GLIVEC [Suspect]
     Active Substance: IMATINIB MESYLATE
     Dosage: 400 MG, QD
     Route: 048
     Dates: start: 20031120
  6. ACETAMINOPHEN. [Concomitant]
     Active Substance: ACETAMINOPHEN
     Indication: HEADACHE
     Dosage: 500 MG, IRD (OCCASIONALLY)
     Route: 065
  7. GLIVEC [Suspect]
     Active Substance: IMATINIB MESYLATE
     Dosage: 400 MG, QD
     Route: 048
     Dates: start: 20160505
  8. ACETAMINOPHEN. [Concomitant]
     Active Substance: ACETAMINOPHEN
     Indication: PAIN IN EXTREMITY
  9. NAPROXEN. [Concomitant]
     Active Substance: NAPROXEN
     Indication: PRODUCT USED FOR UNKNOWN INDICATION
     Dosage: UNK
     Route: 065

REACTIONS (37)
  - Pyrexia [Unknown]
  - Platelet count decreased [Recovered/Resolved]
  - Feeling hot [Recovered/Resolved]
  - Hypertension [Unknown]
  - Headache [Recovered/Resolved]
  - Rash [Recovered/Resolved]
  - Hypoaesthesia oral [Unknown]
  - Blood pressure decreased [Unknown]
  - Fatigue [Unknown]
  - Spinal pain [Unknown]
  - Face injury [Unknown]
  - Pain in extremity [Unknown]
  - Dizziness [Unknown]
  - Hypertension [Recovered/Resolved]
  - Inappropriate schedule of drug administration [Unknown]
  - Hyperhidrosis [Unknown]
  - Acne [Unknown]
  - Vertigo [Unknown]
  - Aphonia [Unknown]
  - Musculoskeletal disorder [Unknown]
  - Headache [Recovered/Resolved]
  - Arthralgia [Unknown]
  - Depressed mood [Unknown]
  - Fall [Unknown]
  - Drug hypersensitivity [Unknown]
  - Rash [Recovered/Resolved with Sequelae]
  - Discomfort [Recovered/Resolved]
  - Depression [Unknown]
  - Decreased immune responsiveness [Unknown]
  - C-reactive protein abnormal [Unknown]
  - Toothache [Unknown]
  - Drug dispensing error [Unknown]
  - Pain [Unknown]
  - Back pain [Unknown]
  - Syncope [Unknown]
  - Influenza [Unknown]
  - White blood cell count decreased [Unknown]

NARRATIVE: CASE EVENT DATE: 20080709
